FAERS Safety Report 6227471-2 (Version None)
Quarter: 2009Q2

REPORT INFORMATION
  Report Type: 
  Country: None (occurrence: None)
  Receive Date: 20090612
  Receipt Date: 20090610
  Transmission Date: 20091009
  Serious: Yes (Hospitalization, Other)
  Sender: FDA-Public Use
  Company Number: US-RB-016718-09

PATIENT
  Sex: Female

DRUGS (2)
  1. SUBOXONE [Suspect]
     Route: 060
     Dates: start: 20050101, end: 20050101
  2. INSULIN [Concomitant]
     Dosage: UNKNOWN DOSE

REACTIONS (2)
  - DELIRIUM [None]
  - HALLUCINATION, AUDITORY [None]
